FAERS Safety Report 9345361 (Version 3)
Quarter: 2013Q4

REPORT INFORMATION
  Report Type: Spontaneous
  Country: FR (occurrence: FR)
  Receive Date: 20130613
  Receipt Date: 20131211
  Transmission Date: 20140711
  Serious: Yes (Hospitalization, Other)
  Sender: FDA-Public Use
  Company Number: FR-PFIZER INC-2012075490

PATIENT
  Age: 36 Year
  Sex: Male

DRUGS (26)
  1. VFEND [Suspect]
     Indication: ASPERGILLUS INFECTION
     Dosage: 280 MG, 2X/DAY
     Dates: start: 20120213, end: 20120213
  2. VFEND [Interacting]
     Dosage: 380 MG, DAILY
     Dates: start: 20120214, end: 20120216
  3. VFEND [Interacting]
     Dosage: 600 MG, DAILY
     Dates: start: 20120217, end: 20120217
  4. VFEND [Interacting]
     Dosage: 400 MG, DAILY
     Dates: start: 20120218, end: 20120223
  5. VFEND [Interacting]
     Dosage: 200 MG, DAILY
     Dates: start: 20120224, end: 20120224
  6. INEXIUM [Interacting]
     Dosage: 40 MG, UNK
     Dates: start: 20120217, end: 20120223
  7. ROCEPHINE [Concomitant]
     Indication: PYREXIA
     Dosage: UNK
     Dates: start: 20120127, end: 20120128
  8. ROCEPHINE [Concomitant]
     Dosage: UNK
     Dates: end: 20120209
  9. ROVAMYCINE [Concomitant]
     Dosage: UNK
     Dates: start: 20120128, end: 20120201
  10. OFLOCET [Concomitant]
  11. FLAGYL ^MAY^ [Concomitant]
     Indication: BRAIN ABSCESS
     Dosage: 12 G, DAILY
     Dates: start: 20120203, end: 20120203
  12. TAZOCILLINE [Concomitant]
     Indication: ENCEPHALITIS
     Dosage: 12 G, DAILY
     Dates: start: 20120203, end: 20120203
  13. TAZOCILLINE [Concomitant]
     Dosage: UNK
     Dates: start: 20120209, end: 20120215
  14. TAZOCILLINE [Concomitant]
     Dosage: UNK
     Dates: start: 20120217
  15. VANCOMYCIN [Concomitant]
     Indication: PYREXIA
     Dosage: UNK
     Dates: start: 20120212, end: 20120220
  16. ARACYTINE [Concomitant]
     Dosage: UNK
     Route: 037
     Dates: start: 20120128, end: 20120204
  17. ARACYTINE [Concomitant]
     Dosage: UNK
     Route: 037
     Dates: start: 20120207
  18. ARACYTINE [Concomitant]
     Dosage: UNK
     Dates: start: 20120210, end: 20120212
  19. DAUNORUBICIN [Concomitant]
     Dosage: UNK
     Dates: start: 20120130, end: 20120201
  20. DAUNORUBICIN [Concomitant]
     Dosage: UNK
     Dates: start: 20120210, end: 20120211
  21. DEPO-MEDROL [Concomitant]
     Dosage: 40 MG, UNK
     Dates: start: 20120207
  22. DEPO-MEDROL [Concomitant]
     Dosage: UNK
     Dates: start: 20120209
  23. METHOTREXATE [Concomitant]
     Dosage: 15 MG, UNK
     Route: 037
     Dates: start: 20120207
  24. METHOTREXATE [Concomitant]
     Dosage: UNK
     Route: 037
     Dates: start: 20120209
  25. FASTURTEC [Concomitant]
  26. HYDREA [Concomitant]

REACTIONS (9)
  - Drug interaction [Unknown]
  - Toxicity to various agents [Unknown]
  - Drug level increased [Recovered/Resolved]
  - Inflammation [Recovered/Resolved]
  - Coma [Recovered/Resolved]
  - Hallucination, visual [Unknown]
  - Hallucination, auditory [Unknown]
  - Pyrexia [Recovered/Resolved]
  - Liver function test abnormal [Unknown]
